FAERS Safety Report 5829582-X (Version None)
Quarter: 2008Q3

REPORT INFORMATION
  Report Type: 
  Country: None (occurrence: None)
  Receive Date: 20080729
  Receipt Date: 20080722
  Transmission Date: 20090109
  Serious: Yes (Hospitalization)
  Sender: FDA-Public Use
  Company Number: 2008SP015013

PATIENT
  Age: 36 Year
  Sex: Male

DRUGS (2)
  1. PEG-INTRON [Suspect]
     Indication: HEPATITIS C
     Dosage: SC
     Route: 058
     Dates: start: 20080429
  2. REBETOL [Suspect]
     Indication: HEPATITIS C
     Dosage: PO
     Route: 048
     Dates: start: 20080429

REACTIONS (6)
  - ABDOMINAL PAIN [None]
  - HEART RATE INCREASED [None]
  - HYPERTENSION [None]
  - PANCREATIC ENZYMES INCREASED [None]
  - SENSATION OF BLOOD FLOW [None]
  - TREMOR [None]
